FAERS Safety Report 22311252 (Version 1)
Quarter: 2023Q2

REPORT INFORMATION
  Report Type: Spontaneous
  Country: US (occurrence: US)
  Receive Date: 20230511
  Receipt Date: 20230511
  Transmission Date: 20230721
  Serious: No
  Sender: FDA-Public Use
  Company Number: US-GILEAD-2023-0627594

PATIENT

DRUGS (1)
  1. TECARTUS [Suspect]
     Active Substance: BREXUCABTAGENE AUTOLEUCEL
     Indication: Product used for unknown indication
     Dosage: UNK
     Route: 065
     Dates: start: 20230502

REACTIONS (5)
  - Nasopharyngitis [Unknown]
  - Body temperature increased [Unknown]
  - Dyspnoea [Unknown]
  - Heart rate increased [Unknown]
  - Pallor [Unknown]

NARRATIVE: CASE EVENT DATE: 20230507
